FAERS Safety Report 18890180 (Version 2)
Quarter: 2021Q1

REPORT INFORMATION
  Report Type: Report from Study
  Country: US (occurrence: US)
  Receive Date: 20210214
  Receipt Date: 20210317
  Transmission Date: 20210420
  Serious: Yes (Other)
  Sender: FDA-Public Use
  Company Number: US-UCBSA-2021005908

PATIENT

DRUGS (1)
  1. LEVETIRACETAM. [Suspect]
     Active Substance: LEVETIRACETAM
     Indication: EPILEPSY
     Dosage: UNK

REACTIONS (7)
  - Generalised tonic-clonic seizure [Unknown]
  - Post concussion syndrome [Unknown]
  - Rib fracture [Unknown]
  - Concussion [Unknown]
  - Adverse drug reaction [Unknown]
  - Memory impairment [Unknown]
  - Road traffic accident [Unknown]
